APPROVED DRUG PRODUCT: TRIMETHOBENZAMIDE HYDROCHLORIDE
Active Ingredient: TRIMETHOBENZAMIDE HYDROCHLORIDE
Strength: 100MG/ML
Dosage Form/Route: INJECTABLE;INJECTION
Application: A087939 | Product #001
Applicant: WATSON LABORATORIES INC
Approved: Dec 28, 1982 | RLD: No | RS: No | Type: DISCN